FAERS Safety Report 19457003 (Version 4)
Quarter: 2022Q1

REPORT INFORMATION
  Report Type: Report from Study
  Country: IE (occurrence: None)
  Receive Date: 20210624
  Receipt Date: 20220311
  Transmission Date: 20220423
  Serious: Yes (Hospitalization)
  Sender: FDA-Public Use
  Company Number: IE-MERCK HEALTHCARE KGAA-9246364

PATIENT
  Age: 20 Year
  Sex: Male

DRUGS (5)
  1. MAVENCLAD [Suspect]
     Active Substance: CLADRIBINE
     Indication: Relapsing-remitting multiple sclerosis
     Dosage: YEAR ONE WEEK ONE THERAPY: 2 TABLETS ON DAYS 1 TO 2 AND 1 TABLET ON DAYS 3 TO 5
     Route: 048
     Dates: start: 20210208
  2. MAVENCLAD [Suspect]
     Active Substance: CLADRIBINE
     Dosage: YEAR ONE WEEK FIVE THERAPY: 2 TABLETS ON DAYS 1 TO 2 AND 1 TABLET ON DAYS 3 TO 5
     Route: 048
     Dates: start: 20210308
  3. MAVENCLAD [Suspect]
     Active Substance: CLADRIBINE
     Dosage: YEAR TWO WEEK ONE THERAPY: 2 TABLETS ON DAYS 1 TO 2 AND 1 TABLET ON DAYS 3 TO 5
     Route: 048
     Dates: start: 20220207
  4. MAVENCLAD [Suspect]
     Active Substance: CLADRIBINE
     Dosage: YEAR TWO WEEK FIVE THERAPY: PRESCRIBED AS 2 TABLETS ON DAYS 1 TO 2 AND 1 TABLET ON DAYS 3 TO 5
     Route: 048
     Dates: start: 20220307
  5. CONCERTA [Concomitant]
     Active Substance: METHYLPHENIDATE HYDROCHLORIDE
     Indication: Product used for unknown indication

REACTIONS (1)
  - Appendicitis [Recovered/Resolved]

NARRATIVE: CASE EVENT DATE: 20210501
